FAERS Safety Report 8480385-X (Version None)
Quarter: 2012Q3

REPORT INFORMATION
  Report Type: 
  Country: None (occurrence: None)
  Receive Date: 20120702
  Receipt Date: 20120622
  Transmission Date: 20120928
  Serious: Yes (Death)
  Sender: FDA-Public Use
  Company Number: AR-ROCHE-1074608

PATIENT
  Sex: Female
  Weight: 60 kg

DRUGS (5)
  1. ACTEMRA [Suspect]
     Indication: RHEUMATOID ARTHRITIS
     Dosage: LAST DOSE PRIOR TO SAE: 27/APR/2012
     Route: 042
     Dates: start: 20120427, end: 20120427
  2. CEFTRIAXONE [Concomitant]
     Indication: PNEUMONIA PRIMARY ATYPICAL
     Route: 042
     Dates: start: 20120528
  3. HYDROCORTISONE [Concomitant]
     Indication: RHEUMATOID ARTHRITIS
     Route: 042
     Dates: start: 20120528, end: 20120607
  4. CLARITHROMYCIN [Concomitant]
     Indication: PNEUMONIA PRIMARY ATYPICAL
     Route: 048
     Dates: start: 20120528
  5. HYDROCORTISONE [Concomitant]
     Indication: ACUTE RESPIRATORY FAILURE

REACTIONS (1)
  - ACUTE RESPIRATORY FAILURE [None]
